FAERS Safety Report 7312082-8 (Version None)
Quarter: 2011Q1

REPORT INFORMATION
  Report Type: 
  Country: None (occurrence: None)
  Receive Date: 20110224
  Receipt Date: 20110125
  Transmission Date: 20110831
  Serious: Yes (Death)
  Sender: FDA-Public Use
  Company Number: US-TYCO HEALTHCARE/MALLINCKRODT-T201100243

PATIENT
  Age: 41 Year
  Sex: Female

DRUGS (5)
  1. METHAMPHETAMINE HYDROCHLORIDE [Suspect]
     Route: 065
  2. CARISOPRODOL [Suspect]
     Route: 065
  3. ALPRAZOLAM [Suspect]
     Route: 065
  4. METFORMIN [Suspect]
     Route: 065
  5. OXYCODONE [Suspect]
     Route: 065

REACTIONS (1)
  - CARDIO-RESPIRATORY ARREST [None]
